FAERS Safety Report 7646324-6 (Version None)
Quarter: 2011Q3

REPORT INFORMATION
  Report Type: 
  Country: None (occurrence: None)
  Receive Date: 20110725
  Receipt Date: 20110716
  Transmission Date: 20111222
  Serious: Yes (Other)
  Sender: FDA-Public Use
  Company Number: 2011-00762

PATIENT
  Age: 52 Year
  Sex: Female

DRUGS (3)
  1. LISINOPRIL [Concomitant]
  2. MELOXICAM [Suspect]
     Indication: OSTEOARTHRITIS
     Dosage: 15 MG (15 MG,  1 IN 1 D)
  3. OMEPRAZOLE [Concomitant]

REACTIONS (8)
  - CONSTIPATION [None]
  - SMALL INTESTINAL STENOSIS [None]
  - BLOOD ALBUMIN DECREASED [None]
  - IRON DEFICIENCY [None]
  - CHANGE OF BOWEL HABIT [None]
  - HAEMOGLOBIN DECREASED [None]
  - SMALL INTESTINAL ULCER HAEMORRHAGE [None]
  - ABDOMINAL PAIN [None]
